FAERS Safety Report 4432635-4 (Version None)
Quarter: 2004Q3

REPORT INFORMATION
  Report Type: 
  Country: None (occurrence: None)
  Receive Date: 20040823
  Receipt Date: 20040809
  Transmission Date: 20050211
  Serious: Yes (Hospitalization, Other)
  Sender: FDA-Public Use
  Company Number: 2004054680

PATIENT
  Age: 53 Year
  Sex: Female

DRUGS (10)
  1. ZOLOFT [Suspect]
     Indication: DEPRESSION
     Dosage: 50 MG (50 MG, 1 IN 1 D), ORAL
     Route: 048
  2. LORAZEPAM [Suspect]
     Indication: ANXIETY
     Dosage: (1 MG AS NECESSARY), ORAL
     Route: 048
  3. DILTIAZEM HYDROCHLORIDE [Suspect]
     Indication: HYPERTENSION
     Dosage: 180 MG (90 MG, 2 IN 1 D), ORAL
     Route: 048
  4. VENLAFAXINE HCL [Suspect]
     Indication: DEPRESSION
     Dosage: 150 MG (150 MG, 1 IN 1 D), ORAL
     Route: 048
  5. ATORVASTATIN (ATORVASTATIN) [Concomitant]
  6. ASPIRIN [Concomitant]
  7. ACETAMINOPHEN [Concomitant]
  8. OMEPRAZOLE [Concomitant]
  9. CELECOXIB (CELECOXIB) [Concomitant]
  10. GINSENG (GINSENG) [Concomitant]

REACTIONS (11)
  - DRUG INTERACTION [None]
  - FACIAL PALSY [None]
  - FEELING ABNORMAL [None]
  - HEADACHE [None]
  - HYPERHIDROSIS [None]
  - HYPOAESTHESIA [None]
  - MYOCLONUS [None]
  - NERVOUSNESS [None]
  - PARAESTHESIA [None]
  - PHONOPHOBIA [None]
  - PHOTOPHOBIA [None]
